FAERS Safety Report 7274889-5 (Version None)
Quarter: 2011Q1

REPORT INFORMATION
  Report Type: 
  Country: None (occurrence: None)
  Receive Date: 20110204
  Receipt Date: 20110201
  Transmission Date: 20110831
  Serious: No
  Sender: FDA-Public Use
  Company Number: US-JNJFOC-20110201004

PATIENT
  Sex: Female
  Weight: 60.78 kg

DRUGS (5)
  1. ADDERALL 10 [Concomitant]
     Indication: ATTENTION DEFICIT/HYPERACTIVITY DISORDER
     Route: 065
  2. LAMOTRIGINE [Concomitant]
     Indication: ANTIDEPRESSANT THERAPY
     Route: 048
  3. VIVACTIL [Concomitant]
     Indication: ANTIDEPRESSANT THERAPY
     Route: 048
  4. INVEGA [Suspect]
     Indication: BIPOLAR DISORDER
     Route: 048
  5. PROVIGIL [Concomitant]
     Indication: SLEEP APNOEA SYNDROME
     Route: 065

REACTIONS (3)
  - ANORGASMIA [None]
  - FATIGUE [None]
  - DRUG DOSE OMISSION [None]
